FAERS Safety Report 25974728 (Version 1)
Quarter: 2025Q4

REPORT INFORMATION
  Report Type: Spontaneous
  Country: US (occurrence: US)
  Receive Date: 20251029
  Receipt Date: 20251029
  Transmission Date: 20260117
  Serious: No
  Sender: ROCHE
  Company Number: US-ROCHE-10000418697

PATIENT
  Sex: Male
  Weight: 68.04 kg

DRUGS (1)
  1. HEMLIBRA [Suspect]
     Active Substance: EMICIZUMAB-KXWH
     Indication: Factor VIII deficiency
     Dosage: STRENGTH 105MG/.7ML
     Route: 058
     Dates: start: 202505

REACTIONS (2)
  - Off label use [Unknown]
  - Weight increased [Unknown]
